FAERS Safety Report 21853720 (Version 1)
Quarter: 2023Q1

REPORT INFORMATION
  Report Type: Spontaneous
  Country: US (occurrence: None)
  Receive Date: 20230111
  Receipt Date: 20230111
  Transmission Date: 20230417
  Serious: Yes (Other)
  Sender: FDA-Public Use
  Company Number: None

PATIENT
  Age: 52 Year
  Sex: Female
  Weight: 90 kg

DRUGS (3)
  1. DIETARY SUPPLEMENT [Suspect]
     Active Substance: DIETARY SUPPLEMENT
     Dates: start: 20220106, end: 20221215
  2. DEXAMETHASONE [Suspect]
     Active Substance: DEXAMETHASONE
  3. LEVOTHYROXINE [Concomitant]
     Active Substance: LEVOTHYROXINE
     Dates: start: 20160105, end: 20230111

REACTIONS (16)
  - Cushing^s syndrome [None]
  - Weight increased [None]
  - Cushingoid [None]
  - Erythema [None]
  - Hypertrichosis [None]
  - Hypertension [None]
  - Palpitations [None]
  - Fatigue [None]
  - Contusion [None]
  - Skin striae [None]
  - Cortisol decreased [None]
  - Blood corticotrophin decreased [None]
  - Adrenal insufficiency [None]
  - Product contamination [None]
  - Drug level decreased [None]
  - Drug level increased [None]

NARRATIVE: CASE EVENT DATE: 20221004
